FAERS Safety Report 10509167 (Version 2)
Quarter: 2014Q4

REPORT INFORMATION
  Report Type: Spontaneous
  Country: DE (occurrence: DE)
  Receive Date: 20141009
  Receipt Date: 20141030
  Transmission Date: 20150528
  Serious: Yes (Other)
  Sender: FDA-Public Use
  Company Number: DE-TEVA-512845GER

PATIENT
  Sex: Male
  Weight: 75 kg

DRUGS (4)
  1. SPIRIVA [Concomitant]
     Active Substance: TIOTROPIUM BROMIDE MONOHYDRATE
     Route: 065
  2. BERODUAL N DOSIERAEROSOL [Concomitant]
     Route: 055
  3. DICLOFENAC RATIOPHARM 75 MG SL RETARDKAPSELN [Suspect]
     Active Substance: DICLOFENAC
     Dosage: 150 MILLIGRAM DAILY;
     Route: 048
  4. FORMOLICH 12 MCG [Concomitant]
     Route: 065

REACTIONS (1)
  - Circulatory collapse [Recovered/Resolved]
